FAERS Safety Report 10143517 (Version 1)
Quarter: 2014Q2

REPORT INFORMATION
  Report Type: Spontaneous
  Country: US (occurrence: None)
  Receive Date: 20140429
  Receipt Date: 20140429
  Transmission Date: 20141212
  Serious: Yes (Hospitalization)
  Sender: FDA-Public Use
  Company Number: None

PATIENT
  Age: 60 Year
  Sex: Male
  Weight: 143.9 kg

DRUGS (2)
  1. AMOXICILIN/CLAVULANATE [Suspect]
     Indication: UPPER RESPIRATORY TRACT INFECTION
     Dates: start: 20140410, end: 20140412
  2. MINOCYCLINE [Suspect]
     Indication: UPPER RESPIRATORY TRACT INFECTION
     Route: 048
     Dates: start: 20140410, end: 20140412

REACTIONS (5)
  - Throat tightness [None]
  - Lip disorder [None]
  - Swollen tongue [None]
  - Dyspnoea [None]
  - Rash [None]
